FAERS Safety Report 6527369-6 (Version None)
Quarter: 2009Q4

REPORT INFORMATION
  Report Type: 
  Country: None (occurrence: None)
  Receive Date: 20091230
  Receipt Date: 20091230
  Transmission Date: 20100525
  Serious: No
  Sender: FDA-Public Use
  Company Number: None

PATIENT
  Age: 45 Year
  Sex: Female
  Weight: 73.9363 kg

DRUGS (1)
  1. EXTREME CONGESTION RELIEF [Suspect]
     Dosage: BID FOR 2 DAYS
     Dates: start: 20091212, end: 20091214

REACTIONS (1)
  - AGEUSIA [None]
